FAERS Safety Report 6329931-2 (Version None)
Quarter: 2009Q3

REPORT INFORMATION
  Report Type: 
  Country: None (occurrence: None)
  Receive Date: 20090826
  Receipt Date: 20090818
  Transmission Date: 20100115
  Serious: Yes (Other)
  Sender: FDA-Public Use
  Company Number: US-AMGEN-QUU359208

PATIENT
  Sex: Female

DRUGS (3)
  1. ENBREL [Suspect]
     Indication: PSORIATIC ARTHROPATHY
     Route: 058
     Dates: start: 20030201
  2. INSULIN [Concomitant]
  3. METFORMIN HCL [Concomitant]

REACTIONS (7)
  - ACROCHORDON [None]
  - FALL [None]
  - LOWER RESPIRATORY TRACT INFLAMMATION [None]
  - LUNG DISORDER [None]
  - MOBILITY DECREASED [None]
  - MUSCULOSKELETAL PAIN [None]
  - WRIST FRACTURE [None]
